FAERS Safety Report 10233815 (Version 2)
Quarter: 2014Q2

REPORT INFORMATION
  Report Type: Spontaneous
  Country: US (occurrence: US)
  Receive Date: 20140612
  Receipt Date: 20140623
  Transmission Date: 20141212
  Serious: Yes (Other)
  Sender: FDA-Public Use
  Company Number: US-JNJFOC-20140607501

PATIENT
  Sex: Female
  Weight: 81.65 kg

DRUGS (2)
  1. DITROPAN XL [Suspect]
     Indication: URINARY INCONTINENCE
     Route: 048
  2. DITROPAN XL [Suspect]
     Indication: BLADDER SPASM
     Route: 048

REACTIONS (1)
  - Thrombosis [Unknown]
